FAERS Safety Report 6726551-2 (Version None)
Quarter: 2010Q2

REPORT INFORMATION
  Report Type: 
  Country: None (occurrence: None)
  Receive Date: 20100514
  Receipt Date: 20100212
  Transmission Date: 20101027
  Serious: Yes (Other)
  Sender: FDA-Public Use
  Company Number: US-BRISTOL-MYERS SQUIBB COMPANY-14975866

PATIENT
  Age: 68 Year
  Sex: Female

DRUGS (2)
  1. IXEMPRA KIT [Suspect]
     Indication: OVARIAN CANCER
     Dosage: BY 07DEC-2009 THE PATIENT HAD RECEIVED 3 CYCLES OF THERAPY
     Route: 042
  2. XELODA [Suspect]
     Indication: OVARIAN CANCER
     Dosage: 1500 MG BID FOR 14 DAYS WITH A 7 DAYS REST
     Dates: end: 20091207

REACTIONS (1)
  - PALMAR-PLANTAR ERYTHRODYSAESTHESIA SYNDROME [None]
